FAERS Safety Report 17099955 (Version 1)
Quarter: 2019Q4

REPORT INFORMATION
  Report Type: Spontaneous
  Country: FR (occurrence: FR)
  Receive Date: 20191202
  Receipt Date: 20191202
  Transmission Date: 20200122
  Serious: Yes (Hospitalization)
  Sender: FDA-Public Use
  Company Number: FR-MYLANLABS-2019M1115606

PATIENT
  Age: 85 Year
  Sex: Male

DRUGS (13)
  1. LANSOPRAZOLE. [Concomitant]
     Active Substance: LANSOPRAZOLE
  2. KARDEGIC [Concomitant]
     Active Substance: ASPIRIN DL-LYSINE
  3. TAMSULOSINE                        /01280301/ [Concomitant]
     Active Substance: TAMSULOSIN
  4. SIMVASTATIN. [Suspect]
     Active Substance: SIMVASTATIN
     Indication: PRODUCT USED FOR UNKNOWN INDICATION
     Dosage: 10 MG - PRISE UNIQUE
     Route: 048
     Dates: start: 20190620, end: 20190620
  5. OLANZAPINE. [Suspect]
     Active Substance: OLANZAPINE
     Indication: PRODUCT USED FOR UNKNOWN INDICATION
     Dosage: 20 GOUTTES - PRISE UNIQUE
     Route: 048
     Dates: start: 20190620, end: 20190620
  6. AMIODARONE                         /00133102/ [Concomitant]
     Active Substance: AMIODARONE
  7. LOXAPAC                            /00401802/ [Suspect]
     Active Substance: LOXAPINE SUCCINATE
     Indication: PRODUCT USED FOR UNKNOWN INDICATION
     Dosage: 30 GOUTTES - PRISE UNIQUE
     Route: 048
     Dates: start: 20190620, end: 20190620
  8. MIANSERINE                         /00390602/ [Concomitant]
     Active Substance: MIANSERIN HYDROCHLORIDE
  9. RISPERIDONE. [Concomitant]
     Active Substance: RISPERIDONE
  10. PARACETAMOL [Concomitant]
     Active Substance: ACETAMINOPHEN
  11. VALPROIC ACID. [Suspect]
     Active Substance: VALPROIC ACID
     Indication: PRODUCT USED FOR UNKNOWN INDICATION
     Dosage: 750 MG - PRISE UNIQUE
     Route: 048
     Dates: start: 20190620, end: 20190620
  12. TRAMADOL                           /00599202/ [Concomitant]
     Active Substance: TRAMADOL
  13. SERESTA [Suspect]
     Active Substance: OXAZEPAM
     Indication: PRODUCT USED FOR UNKNOWN INDICATION
     Dosage: 50 MG - PRISE UNIQUE
     Route: 048
     Dates: start: 20190620, end: 20190620

REACTIONS (2)
  - Wrong patient received product [Recovered/Resolved]
  - Somnolence [Recovered/Resolved]

NARRATIVE: CASE EVENT DATE: 20190620
